FAERS Safety Report 4452651-6 (Version None)
Quarter: 2004Q3

REPORT INFORMATION
  Report Type: 
  Country: None (occurrence: None)
  Receive Date: 20040916
  Receipt Date: 20040902
  Transmission Date: 20050211
  Serious: Yes (Death)
  Sender: FDA-Public Use
  Company Number: 2002AP03381

PATIENT
  Age: 73 Year
  Sex: Male

DRUGS (14)
  1. IRESSA [Suspect]
     Indication: LUNG ADENOCARCINOMA
     Dosage: 250 MG DAILY PO
     Route: 048
     Dates: start: 20021009, end: 20021012
  2. IRESSA [Suspect]
     Indication: NON-SMALL CELL LUNG CANCER
     Dosage: 250 MG DAILY PO
     Route: 048
     Dates: start: 20021009, end: 20021012
  3. CIS-DIAMINEDICHLOROPLATINUM [Concomitant]
  4. VP-6 [Concomitant]
  5. INORET-R [Concomitant]
  6. LANIRAPID [Concomitant]
  7. LASIX [Concomitant]
  8. ALDACTONE-A [Concomitant]
  9. KALGUT [Concomitant]
  10. MEXITIL [Concomitant]
  11. RHYTHNODAN-R [Concomitant]
  12. MAGNESIUM OXIDE [Concomitant]
  13. MARZULENE S [Concomitant]
  14. TANATRIL ^HORMOSAN^ [Concomitant]

REACTIONS (9)
  - ABDOMINAL DISCOMFORT [None]
  - ANOREXIA [None]
  - BLOOD PRESSURE INCREASED [None]
  - CONDITION AGGRAVATED [None]
  - DEPRESSED LEVEL OF CONSCIOUSNESS [None]
  - HAEMATURIA [None]
  - INTERSTITIAL LUNG DISEASE [None]
  - MALAISE [None]
  - RESPIRATORY FAILURE [None]
